FAERS Safety Report 7311016 (Version 2)
Quarter: 2012Q4

REPORT INFORMATION
  Report Type: 
  Country: US (occurrence: US)
  Receive Date: 20100310
  Receipt Date: 20121214
  Transmission Date: 20130627
  Serious: No
  Sender: FDA-Public Use
  Company Number: US-BIOGENIDEC-2010BI001629

PATIENT
  Age: 43 Year
  Sex: Female

DRUGS (2)
  1. AVONEX [Suspect]
     Indication: MULTIPLE SCLEROSIS
     Route: 030
     Dates: start: 20081101
  2. AVONEX [Suspect]
     Indication: MULTIPLE SCLEROSIS
     Route: 030
     Dates: start: 20081110, end: 20110329

REACTIONS (5)
  - Feeling of body temperature change [Unknown]
  - Memory impairment [Unknown]
  - Palpitations [Recovered/Resolved]
  - Influenza like illness [Recovered/Resolved]
  - Asthenia [Unknown]
